FAERS Safety Report 7107032 (Version 2)
Quarter: 2020Q3

REPORT INFORMATION
  Report Type: Report from Study
  Country: DE (occurrence: DE)
  Receive Date: 20090908
  Receipt Date: 20100709
  Transmission Date: 20201104
  Serious: Yes (Other)
  Sender: FDA-Public Use
  Company Number: DE-ROCHE-652523

PATIENT
  Age: 70 Year
  Weight: 72 kg

DRUGS (2)
  1. TAXOL [Concomitant]
     Active Substance: PACLITAXEL
     Dates: start: 200512
  2. IBANDRONIC ACID. [Suspect]
     Active Substance: IBANDRONIC ACID
     Indication: METASTASES TO BONE
     Dosage: DOSES ON 22 DEC 05, 24 JAN 06, 22 FEB 06, 28 MAR 06, 5 MAY 06, 14 JUN 06 AND 12 JUL 06
     Route: 042
     Dates: start: 20051222, end: 20060712

REACTIONS (4)
  - Hypertension [Recovered/Resolved]
  - Pyrexia [Recovered/Resolved]
  - Pneumonia [Unknown]
  - Pulmonary oedema [Recovered/Resolved]

NARRATIVE: CASE EVENT DATE: 20060404
